FAERS Safety Report 5280423-1 (Version None)
Quarter: 2007Q1

REPORT INFORMATION
  Report Type: 
  Country: None (occurrence: None)
  Receive Date: 20061229
  Receipt Date: 20060811
  Transmission Date: 20070707
  Serious: Yes (Other)
  Sender: FDA-Public Use
  Company Number: 2006UW16021

PATIENT
  Age: 81 Year
  Weight: 69.399 kg

DRUGS (6)
  1. CRESTOR [Suspect]
     Indication: BLOOD CHOLESTEROL INCREASED
     Dates: start: 20060810
  2. DILANTIN [Concomitant]
  3. SINEMET [Concomitant]
  4. LEXAPRO [Concomitant]
  5. SEROQUEL [Concomitant]
  6. ATENOLOL [Concomitant]

REACTIONS (1)
  - EYE DISORDER [None]
